FAERS Safety Report 7525553-6 (Version None)
Quarter: 2011Q2

REPORT INFORMATION
  Report Type: 
  Country: None (occurrence: None)
  Receive Date: 20110602
  Receipt Date: 20110602
  Transmission Date: 20111010
  Serious: Yes (Congenital Anomaly, Other)
  Sender: FDA-Public Use
  Company Number: None

PATIENT
  Age: 65 Year
  Sex: Male
  Weight: 104.3273 kg

DRUGS (2)
  1. CHOLECALCIFEROL VIT D3 [Suspect]
  2. ERGOCALCIFEROL [Suspect]

REACTIONS (4)
  - BALANCE DISORDER [None]
  - HALLUCINATION [None]
  - OEDEMA PERIPHERAL [None]
  - LOCAL SWELLING [None]
